FAERS Safety Report 6405898-3 (Version None)
Quarter: 2009Q4

REPORT INFORMATION
  Report Type: 
  Country: None (occurrence: None)
  Receive Date: 20091014
  Receipt Date: 20090930
  Transmission Date: 20100525
  Serious: Yes (Death, Hospitalization)
  Sender: FDA-Public Use
  Company Number: 2009AC000066

PATIENT
  Sex: Female

DRUGS (18)
  1. DIGOXIN [Suspect]
     Dosage: 0.25 MG; QD; PO
     Route: 048
  2. DEPO-MEDROL [Concomitant]
  3. MARCAINE [Concomitant]
  4. ALLOPURINOL [Concomitant]
  5. ALTACE [Concomitant]
  6. DIOVAN [Concomitant]
  7. MAGNESIUM OXIDE [Concomitant]
  8. LASIX [Concomitant]
  9. PROTONIX [Concomitant]
  10. WELLBUTRIN [Concomitant]
  11. BIDIL [Concomitant]
  12. TOPROL-XL [Concomitant]
  13. ASPIRIN [Concomitant]
  14. KEFLEX [Concomitant]
  15. URELLE [Concomitant]
  16. INSULIN [Concomitant]
  17. GLUCOPHAGE [Concomitant]
  18. ACTOS [Concomitant]

REACTIONS (9)
  - CALCULUS URETERIC [None]
  - ECONOMIC PROBLEM [None]
  - HYDRONEPHROSIS [None]
  - MENISCUS LESION [None]
  - MULTIPLE INJURIES [None]
  - NO THERAPEUTIC RESPONSE [None]
  - PULMONARY GRANULOMA [None]
  - SURGERY [None]
  - URETHRAL MEATUS STENOSIS [None]
